FAERS Safety Report 6352257-8 (Version None)
Quarter: 2009Q3

REPORT INFORMATION
  Report Type: 
  Country: None (occurrence: None)
  Receive Date: 20090912
  Receipt Date: 20090622
  Transmission Date: 20100115
  Serious: No
  Sender: FDA-Public Use
  Company Number: US-ABBOTT-08P-163-0433069-00

PATIENT
  Sex: Female
  Weight: 69.008 kg

DRUGS (3)
  1. HUMIRA [Suspect]
     Indication: ANKYLOSING SPONDYLITIS
     Route: 058
     Dates: start: 20071001
  2. PROPRANOLOL [Concomitant]
     Indication: HYPERTENSION
     Route: 048
  3. INEGY [Concomitant]
     Indication: BLOOD CHOLESTEROL INCREASED
     Route: 048

REACTIONS (1)
  - INCORRECT DOSE ADMINISTERED [None]
